FAERS Safety Report 5862926-1 (Version None)
Quarter: 2008Q3

REPORT INFORMATION
  Report Type: 
  Country: None (occurrence: None)
  Receive Date: 20080828
  Receipt Date: 20080821
  Transmission Date: 20090109
  Serious: Yes (Hospitalization)
  Sender: FDA-Public Use
  Company Number: A0744816A

PATIENT
  Age: 76 Year
  Sex: Female
  Weight: 122.7 kg

DRUGS (1)
  1. AVANDIA [Suspect]
     Dosage: 4MG PER DAY
     Route: 048
     Dates: start: 20010101, end: 20070701

REACTIONS (2)
  - CARDIAC DISORDER [None]
  - CARDIAC FAILURE CONGESTIVE [None]
